FAERS Safety Report 7424481-4 (Version None)
Quarter: 2011Q2

REPORT INFORMATION
  Report Type: 
  Country: None (occurrence: None)
  Receive Date: 20110419
  Receipt Date: 20110414
  Transmission Date: 20111010
  Serious: Yes (Hospitalization)
  Sender: FDA-Public Use
  Company Number: US-ABBOTT-11P-163-0719228-00

PATIENT
  Sex: Male
  Weight: 79.45 kg

DRUGS (9)
  1. CALCITRIOL [Concomitant]
     Indication: MINERAL SUPPLEMENTATION
  2. MULTI-VITAMIN [Concomitant]
     Indication: VITAMIN SUPPLEMENTATION
  3. BISOPROLOL [Concomitant]
     Indication: HYPERTENSION
  4. ASPIRIN [Concomitant]
     Indication: SUPPLEMENTATION THERAPY
  5. OMEPRAZOLE [Concomitant]
     Indication: GASTROOESOPHAGEAL REFLUX DISEASE
  6. NIASPAN [Suspect]
     Indication: DYSLIPIDAEMIA
     Dates: start: 20090101, end: 20091201
  7. CRESTOR [Concomitant]
     Indication: BLOOD CHOLESTEROL INCREASED
  8. AMLODIPINE [Concomitant]
     Indication: HYPERTENSION
  9. NIASPAN [Suspect]
     Dates: start: 20110413

REACTIONS (4)
  - RENAL FAILURE [None]
  - PNEUMONIA [None]
  - PARAESTHESIA [None]
  - INSOMNIA [None]
